FAERS Safety Report 7594222-9 (Version None)
Quarter: 2011Q3

REPORT INFORMATION
  Report Type: 
  Country: None (occurrence: None)
  Receive Date: 20110706
  Receipt Date: 20110627
  Transmission Date: 20111222
  Serious: Yes (Hospitalization)
  Sender: FDA-Public Use
  Company Number: FR-ASTRAZENECA-2011SE39920

PATIENT
  Age: 58 Year
  Sex: Male

DRUGS (10)
  1. CLOMIPRAMINE HYDROCHLORIDE [Concomitant]
     Route: 048
  2. ACUPAN [Concomitant]
  3. VALIUM [Concomitant]
  4. TIAPRIDE [Concomitant]
     Route: 048
  5. ZOLMITRIPTAN [Suspect]
     Route: 048
     Dates: start: 20101201, end: 20101201
  6. SUMATRIPTAN SUCCINATE [Suspect]
     Indication: MIGRAINE
     Route: 058
     Dates: start: 20091201
  7. ERGOTAMINE TARTRATE AND CAFFEINE [Suspect]
     Indication: MIGRAINE
     Route: 048
     Dates: start: 20091201
  8. INDOCIN [Suspect]
     Route: 054
     Dates: start: 20101212, end: 20101212
  9. TIAPRIDE [Concomitant]
     Route: 042
     Dates: start: 20101201
  10. CLOMIPRAMINE HYDROCHLORIDE [Concomitant]
     Route: 042
     Dates: start: 20101201

REACTIONS (3)
  - MIGRAINE [None]
  - OVERDOSE [None]
  - DRUG INEFFECTIVE [None]
